FAERS Safety Report 4647677-3 (Version None)
Quarter: 2005Q2

REPORT INFORMATION
  Report Type: 
  Country: None (occurrence: None)
  Receive Date: 20050427
  Receipt Date: 20050418
  Transmission Date: 20051028
  Serious: Yes (Hospitalization)
  Sender: FDA-Public Use
  Company Number: 2005024664

PATIENT
  Sex: Male
  Weight: 72.5755 kg

DRUGS (8)
  1. SURFAK (DOCUSATE CALCIUM) [Suspect]
     Indication: FAECES HARD
     Dosage: 2 LIQUIDGELS HS, ORAL
     Route: 048
     Dates: start: 19740101
  2. ASPIRIN [Concomitant]
  3. BETA BLOCKING AGENTS (BETA BLOCKING AGENTS) [Concomitant]
  4. ACE INHIBITOR NOS (ACE INHIBITOR NOS) [Concomitant]
  5. TERAZOSIN (TERAZOSIN) [Concomitant]
  6. VITAMIN B NOS (VITAMIN B NOS) [Concomitant]
  7. NICOTINIC ACID [Concomitant]
  8. ATORVASTATIN (ATORVASTATIN) [Concomitant]

REACTIONS (6)
  - BACK DISORDER [None]
  - MYALGIA [None]
  - MYOCARDIAL INFARCTION [None]
  - NECK PAIN [None]
  - PNEUMONIA [None]
  - VIRAL INFECTION [None]
